FAERS Safety Report 16159604 (Version 3)
Quarter: 2019Q2

REPORT INFORMATION
  Report Type: Report from Study
  Country: US (occurrence: US)
  Receive Date: 20190404
  Receipt Date: 20190527
  Transmission Date: 20190711
  Serious: No
  Sender: FDA-Public Use
  Company Number: US-SA-2019SA089649

PATIENT
  Age: 71 Year
  Sex: Female

DRUGS (1)
  1. TERIFLUNOMIDE. [Suspect]
     Active Substance: TERIFLUNOMIDE
     Dosage: UNK UNK, QD
     Route: 048
     Dates: start: 201902

REACTIONS (11)
  - Gastrointestinal pain [Unknown]
  - Balance disorder [Unknown]
  - Paraesthesia [Unknown]
  - Abdominal pain upper [Recovered/Resolved]
  - Hallucination, auditory [Unknown]
  - Fall [Unknown]
  - Chest discomfort [Unknown]
  - Mass [Unknown]
  - Pain in extremity [Unknown]
  - Hypersensitivity [Unknown]
  - Hypoaesthesia [Unknown]

NARRATIVE: CASE EVENT DATE: 2019
